FAERS Safety Report 17905303 (Version 10)
Quarter: 2021Q3

REPORT INFORMATION
  Report Type: Report from Study
  Country: US (occurrence: US)
  Receive Date: 20200616
  Receipt Date: 20210809
  Transmission Date: 20211014
  Serious: Yes (Death, Life-Threatening, Hospitalization, Other)
  Sender: FDA-Public Use
  Company Number: US-GILEAD-2020-0455014

PATIENT
  Age: 71 Year
  Sex: Male
  Weight: 93 kg

DRUGS (46)
  1. AXICABTAGENE CILOLEUCEL [Suspect]
     Active Substance: AXICABTAGENE CILOLEUCEL
     Indication: B-CELL LYMPHOMA
     Dosage: 68
     Route: 042
     Dates: start: 20200317, end: 20200317
  2. CYCLOPHOSPHAMIDE. [Suspect]
     Active Substance: CYCLOPHOSPHAMIDE
     Indication: BONE MARROW CONDITIONING REGIMEN
     Dosage: 500
     Route: 042
     Dates: start: 20200311, end: 20200311
  3. RITUXIMAB. [Suspect]
     Active Substance: RITUXIMAB
     Indication: CHEMOTHERAPY
     Dosage: 806
     Route: 042
     Dates: start: 20200311, end: 20200311
  4. MESNA. [Suspect]
     Active Substance: MESNA
     Indication: PROPHYLAXIS
     Dosage: 500
     Route: 042
     Dates: start: 20200311, end: 20200312
  5. POLYETHYLENE GLYCOL [MACROGOL] [Concomitant]
     Active Substance: POLYETHYLENE GLYCOLS
     Dosage: 17,G,ONCE
     Route: 048
     Dates: start: 20200513, end: 20200513
  6. PANCRELIPASE. [Concomitant]
     Active Substance: PANCRELIPASE
     Dosage: 24000,OTHER,AS NECESSARY
     Route: 050
     Dates: start: 20200429
  7. MESNA. [Suspect]
     Active Substance: MESNA
     Dosage: 500
     Route: 042
     Dates: start: 20200314, end: 20200315
  8. DOCUSATE SODIUM;SENNA ALEXANDRINA [Concomitant]
     Active Substance: DOCUSATE SODIUM\SENNA LEAF
     Dosage: 8.6,MG,TWICE DAILY
     Route: 048
     Dates: start: 20200215, end: 20200513
  9. FENTANYL. [Concomitant]
     Active Substance: FENTANYL
     Dosage: 12.5?25,UG,AS NECESSARY
     Dates: start: 20200513
  10. ACETAMINOPHEN. [Concomitant]
     Active Substance: ACETAMINOPHEN
     Dosage: 650,MG,AS NECESSARY
     Route: 048
     Dates: start: 20200422, end: 20200513
  11. PENTAMIDINE [Concomitant]
     Active Substance: PENTAMIDINE
     Dosage: 300,MG,ONCE
     Route: 042
     Dates: start: 20200514, end: 20200514
  12. CASPOFUNGIN [Concomitant]
     Active Substance: CASPOFUNGIN
     Dosage: 50,MG,DAILY
     Route: 042
     Dates: start: 20200515, end: 20200519
  13. CASPOFUNGIN [Concomitant]
     Active Substance: CASPOFUNGIN
     Dosage: 50,MG,DAILY
     Route: 042
     Dates: start: 20200529, end: 20200530
  14. MINOCYCLINE [Concomitant]
     Active Substance: MINOCYCLINE HYDROCHLORIDE
     Dosage: 100,MG,TWICE DAILY
     Route: 042
     Dates: start: 20200508, end: 20200512
  15. CYCLOPHOSPHAMIDE. [Suspect]
     Active Substance: CYCLOPHOSPHAMIDE
     Dosage: 500
     Route: 042
     Dates: start: 20200312, end: 20200312
  16. FENTANYL. [Concomitant]
     Active Substance: FENTANYL
     Dosage: 50,UG,OTHER
     Route: 062
     Dates: start: 20200225, end: 20200604
  17. DIPHENHYDRAMINE. [Concomitant]
     Active Substance: DIPHENHYDRAMINE
     Dosage: 12.5,MG,ONCE
     Route: 042
     Dates: start: 20200514, end: 20200514
  18. VALACYCLOVIR [Concomitant]
     Active Substance: VALACYCLOVIR HYDROCHLORIDE
     Dosage: 500,MG,DAILY
     Route: 048
     Dates: start: 20191018, end: 20200513
  19. MEROPENEM. [Concomitant]
     Active Substance: MEROPENEM
     Dosage: 1,G,THREE TIMES DAILY
     Route: 042
     Dates: start: 20200508, end: 20200515
  20. RED BLOOD CELLS, CONCENTRATED [Concomitant]
     Active Substance: HUMAN RED BLOOD CELL
     Dosage: 2,OTHER,ONCE
     Route: 042
     Dates: start: 20200511, end: 20200511
  21. RED BLOOD CELLS, CONCENTRATED [Concomitant]
     Active Substance: HUMAN RED BLOOD CELL
     Dosage: 1,OTHER,ONCE
     Route: 042
     Dates: start: 20200519, end: 20200519
  22. FLUDARABINE [Suspect]
     Active Substance: FLUDARABINE PHOSPHATE
     Dosage: 30
     Route: 042
     Dates: start: 20200311, end: 20200311
  23. MIRALAX [Concomitant]
     Active Substance: POLYETHYLENE GLYCOL 3350
     Dosage: 17,G,DAILY
     Route: 048
     Dates: start: 20200215, end: 20200604
  24. MORPHINE [Concomitant]
     Active Substance: MORPHINE
     Dosage: 15,MG,OTHER
     Route: 048
     Dates: start: 20200221, end: 20200604
  25. FENTANYL. [Concomitant]
     Active Substance: FENTANYL
     Dosage: 50,UG,THREE TIMES DAILY
     Dates: start: 20200513
  26. FLUDARABINE [Suspect]
     Active Substance: FLUDARABINE PHOSPHATE
     Indication: BONE MARROW CONDITIONING REGIMEN
     Dosage: 30
     Route: 042
     Dates: start: 20200314, end: 20200314
  27. FLUDARABINE [Suspect]
     Active Substance: FLUDARABINE PHOSPHATE
     Dosage: 30
     Route: 042
     Dates: start: 20200312, end: 20200312
  28. MIRALAX [Concomitant]
     Active Substance: POLYETHYLENE GLYCOL 3350
     Dosage: 17,G,DAILY
     Route: 048
     Dates: start: 20200215, end: 20200513
  29. FENTANYL. [Concomitant]
     Active Substance: FENTANYL
     Dosage: 25?200,UG,DAILY
     Dates: start: 20200513
  30. VALACYCLOVIR [Concomitant]
     Active Substance: VALACYCLOVIR HYDROCHLORIDE
     Dosage: 500,MG,DAILY
     Route: 050
     Dates: start: 20200521, end: 20200602
  31. CELECOXIB. [Concomitant]
     Active Substance: CELECOXIB
     Dosage: 100,MG,TWICE DAILY
     Route: 048
     Dates: start: 20200224, end: 20200604
  32. PLATELETS [Concomitant]
     Active Substance: HUMAN PLATELET, ALLOGENIC
     Dosage: 1,OTHER,ONCE
     Route: 042
     Dates: start: 20200511, end: 20200511
  33. RITUXIMAB. [Suspect]
     Active Substance: RITUXIMAB
     Dosage: 743
     Route: 042
     Dates: start: 20200407, end: 20200407
  34. SENOKOT?S [Concomitant]
     Active Substance: DOCUSATE SODIUM\SENNOSIDES
     Dosage: 8.6,MG,AS NECESSARY
     Route: 048
     Dates: start: 20200215, end: 20200513
  35. RED BLOOD CELLS, CONCENTRATED [Concomitant]
     Active Substance: HUMAN RED BLOOD CELL
     Dosage: 1,OTHER,ONCE
     Route: 042
     Dates: start: 20200523, end: 20200523
  36. CYCLOPHOSPHAMIDE. [Suspect]
     Active Substance: CYCLOPHOSPHAMIDE
     Dosage: 500
     Route: 042
     Dates: start: 20200314, end: 20200314
  37. ACETAMINOPHEN. [Concomitant]
     Active Substance: ACETAMINOPHEN
     Dosage: 650,MG,ONCE
     Route: 050
     Dates: start: 20200515, end: 20200515
  38. ACETAMINOPHEN. [Concomitant]
     Active Substance: ACETAMINOPHEN
     Dosage: 650,MG,AS NECESSARY
     Route: 050
     Dates: start: 20200523, end: 20200604
  39. ACETAMINOPHEN. [Concomitant]
     Active Substance: ACETAMINOPHEN
     Dosage: 650,MG,AS NECESSARY
     Route: 048
     Dates: start: 20200504, end: 20200512
  40. CASPOFUNGIN [Concomitant]
     Active Substance: CASPOFUNGIN
     Dosage: 70,MG,ONCE
     Route: 042
     Dates: start: 20200514, end: 20200514
  41. MELATONIN [Concomitant]
     Active Substance: MELATONIN
     Dosage: 5,MG,DAILY
     Route: 048
     Dates: start: 20200522, end: 20200603
  42. ALLOPURINOL. [Concomitant]
     Active Substance: ALLOPURINOL
     Dosage: 300,MG,DAILY
     Route: 048
     Dates: start: 20200201, end: 20200604
  43. CALCIUM CARBONATE. [Concomitant]
     Active Substance: CALCIUM CARBONATE
     Dosage: UNK
     Dates: start: 20200505
  44. RITUXIMAB. [Suspect]
     Active Substance: RITUXIMAB
     Dosage: 780
     Route: 042
     Dates: start: 20200505, end: 20200505
  45. MESNA. [Suspect]
     Active Substance: MESNA
     Dosage: 500
     Route: 042
     Dates: start: 20200312, end: 20200312
  46. CALCIUM CARBONATE. [Concomitant]
     Active Substance: CALCIUM CARBONATE
     Dosage: 1000,MG,DAILY
     Route: 048
     Dates: start: 20200526, end: 20200602

REACTIONS (15)
  - Confusional state [Recovered/Resolved]
  - B-cell lymphoma [Fatal]
  - Hypokalaemia [Recovered/Resolved]
  - Respiratory failure [Recovered/Resolved]
  - Depression [Recovered/Resolved]
  - Hypoxia [Recovered/Resolved]
  - Agitation [Recovered/Resolved]
  - Hypotension [Recovered/Resolved]
  - Pain [Recovered/Resolved]
  - Decreased appetite [Recovered/Resolved]
  - Sepsis [Recovered/Resolved]
  - Hypoxia [Recovered/Resolved]
  - Embolism [Recovered/Resolved]
  - Respiratory failure [Recovered/Resolved]
  - Pleural effusion [Recovered/Resolved]

NARRATIVE: CASE EVENT DATE: 20200312
